FAERS Safety Report 4280439-8 (Version None)
Quarter: 2004Q1

REPORT INFORMATION
  Report Type: 
  Country: None (occurrence: None)
  Receive Date: 20040126
  Receipt Date: 20040120
  Transmission Date: 20041129
  Serious: Yes (Death)
  Sender: FDA-Public Use
  Company Number: US-JNJFOC-20040104151

PATIENT
  Age: 75 Year
  Sex: Female

DRUGS (9)
  1. RISPERDAL [Suspect]
     Indication: PSYCHOTIC DISORDER
     Dosage: 0.5 MG, 1 IN 1 DAY, ORAL
     Route: 048
     Dates: start: 20030301
  2. DURAGESIC [Concomitant]
  3. DEMEROL [Concomitant]
  4. VASOTEC [Concomitant]
  5. LASIX [Concomitant]
  6. K-DUR 10 [Concomitant]
  7. IRON (IRON) [Concomitant]
  8. KEFLEX [Concomitant]
  9. DIFLUCAN [Concomitant]

REACTIONS (1)
  - SEPTIC SHOCK [None]
